FAERS Safety Report 9985114 (Version 2)
Quarter: 2014Q2

REPORT INFORMATION
  Report Type: Report from Study
  Country: US (occurrence: US)
  Receive Date: 20140307
  Receipt Date: 20140404
  Transmission Date: 20141212
  Serious: Yes (Death, Hospitalization, Other)
  Sender: FDA-Public Use
  Company Number: US-ACTELION-A-NJ2014-95517

PATIENT
  Age: 65 Year
  Sex: Female

DRUGS (1)
  1. MACITENTAN [Suspect]
     Indication: PRODUCT USED FOR UNKNOWN INDICATION
     Route: 048

REACTIONS (3)
  - Staphylococcal infection [Fatal]
  - Lung disorder [Unknown]
  - Transplant evaluation [Unknown]
